FAERS Safety Report 10984281 (Version 4)
Quarter: 2015Q4

REPORT INFORMATION
  Report Type: Report from Study
  Country: DE (occurrence: DE)
  Receive Date: 20150403
  Receipt Date: 20151218
  Transmission Date: 20160304
  Serious: Yes (Hospitalization, Other)
  Sender: FDA-Public Use
  Company Number: DE-SA-2014SA143348

PATIENT
  Age: 38 Year
  Sex: Female
  Weight: 88 kg

DRUGS (2)
  1. GABAPENTIN. [Concomitant]
     Active Substance: GABAPENTIN
     Dates: start: 201508, end: 201510
  2. AUBAGIO [Suspect]
     Active Substance: TERIFLUNOMIDE
     Indication: MULTIPLE SCLEROSIS
     Route: 048
     Dates: start: 20140627

REACTIONS (17)
  - Arthropathy [Unknown]
  - Spinal osteoarthritis [Recovering/Resolving]
  - Radiculopathy [Recovering/Resolving]
  - Hypoaesthesia [Unknown]
  - Urinary tract infection [Recovered/Resolved]
  - Back pain [Not Recovered/Not Resolved]
  - Asthma [Not Recovered/Not Resolved]
  - Gait disturbance [Recovering/Resolving]
  - Infection [Unknown]
  - Bronchitis [Recovered/Resolved]
  - Bronchitis [Recovered/Resolved]
  - Osteoarthritis [Not Recovered/Not Resolved]
  - Facet joint syndrome [Unknown]
  - Radiculopathy [Unknown]
  - Sciatica [Recovering/Resolving]
  - Pain [Recovering/Resolving]
  - Back pain [Recovering/Resolving]

NARRATIVE: CASE EVENT DATE: 20140908
